FAERS Safety Report 23933463 (Version 1)
Quarter: 2024Q2

REPORT INFORMATION
  Report Type: Spontaneous
  Country: US (occurrence: US)
  Receive Date: 20240603
  Receipt Date: 20240603
  Transmission Date: 20240716
  Serious: No
  Sender: FDA-Public Use
  Company Number: US-GILEAD-2024-0674100

PATIENT
  Age: 22 Year
  Sex: Female

DRUGS (3)
  1. BIKTARVY [Suspect]
     Active Substance: BICTEGRAVIR SODIUM\EMTRICITABINE\TENOFOVIR ALAFENAMIDE FUMARATE
     Indication: HIV infection
     Dosage: UNK
     Route: 065
  2. LENACAPAVIR [Concomitant]
     Active Substance: LENACAPAVIR
  3. CABENUVA [Concomitant]
     Active Substance: CABOTEGRAVIR\RILPIVIRINE

REACTIONS (3)
  - Viraemia [Unknown]
  - Treatment noncompliance [Unknown]
  - Maternal exposure during pregnancy [Unknown]
